FAERS Safety Report 17053195 (Version 1)
Quarter: 2019Q4

REPORT INFORMATION
  Report Type: Spontaneous
  Country: US (occurrence: US)
  Receive Date: 20191120
  Receipt Date: 20191120
  Transmission Date: 20200122
  Serious: No
  Sender: FDA-Public Use
  Company Number: US-PFIZER INC-2019499442

PATIENT
  Age: 66 Year
  Sex: Female
  Weight: 58.97 kg

DRUGS (3)
  1. CHANTIX [Suspect]
     Active Substance: VARENICLINE TARTRATE
     Indication: SMOKING CESSATION THERAPY
     Dosage: 5 MG, UNK
  2. CHANTIX [Suspect]
     Active Substance: VARENICLINE TARTRATE
     Dosage: 1 MG, 2X/DAY
  3. INSULIN [Concomitant]
     Active Substance: INSULIN NOS
     Dosage: 25 MG, 2X/DAY (SHOT IN STOMACH)

REACTIONS (4)
  - Vomiting [Unknown]
  - Nausea [Not Recovered/Not Resolved]
  - Visual impairment [Unknown]
  - Overdose [Unknown]
